FAERS Safety Report 6383720-1 (Version None)
Quarter: 2009Q3

REPORT INFORMATION
  Report Type: 
  Country: None (occurrence: None)
  Receive Date: 20090929
  Receipt Date: 20090929
  Transmission Date: 20100115
  Serious: Yes (Other)
  Sender: FDA-Public Use
  Company Number: None

PATIENT
  Age: 31 Year
  Sex: Female
  Weight: 54.4316 kg

DRUGS (1)
  1. LEVAQUIN [Suspect]
     Indication: SINUSITIS
     Dosage: 750 MG 1X/DAY PO
     Route: 048
     Dates: start: 20081221, end: 20081231

REACTIONS (13)
  - ABASIA [None]
  - ARTHRALGIA [None]
  - CYANOSIS [None]
  - DIZZINESS [None]
  - HEADACHE [None]
  - MYALGIA [None]
  - MYODESOPSIA [None]
  - OCULAR HYPERAEMIA [None]
  - PALPITATIONS [None]
  - SWELLING [None]
  - THROMBOSIS [None]
  - VEIN DISORDER [None]
  - VISUAL IMPAIRMENT [None]
